FAERS Safety Report 6764087-3 (Version None)
Quarter: 2010Q2

REPORT INFORMATION
  Report Type: 
  Country: None (occurrence: None)
  Receive Date: 20100610
  Receipt Date: 20090706
  Transmission Date: 20101027
  Serious: No
  Sender: FDA-Public Use
  Company Number: A0795506A

PATIENT
  Sex: Male

DRUGS (1)
  1. AXID [Suspect]
     Route: 065
     Dates: start: 20090618

REACTIONS (12)
  - DISCOMFORT [None]
  - EXPIRED DRUG ADMINISTERED [None]
  - HYPERSENSITIVITY [None]
  - LIP SWELLING [None]
  - LOCAL SWELLING [None]
  - OEDEMA [None]
  - PAIN [None]
  - PRURITUS GENITAL [None]
  - SCROTAL SWELLING [None]
  - SKIN DISCOLOURATION [None]
  - SWOLLEN TONGUE [None]
  - TOOTH DISORDER [None]
